FAERS Safety Report 20438155 (Version 2)
Quarter: 2024Q3

REPORT INFORMATION
  Report Type: Spontaneous
  Country: DE (occurrence: DE)
  Receive Date: 20220207
  Receipt Date: 20240910
  Transmission Date: 20241016
  Serious: Yes (Other)
  Sender: ALKEM
  Company Number: None

PATIENT
  Age: 53 Year
  Sex: Female

DRUGS (16)
  1. PREGABALIN [Suspect]
     Active Substance: PREGABALIN
     Indication: Neuralgia
     Dosage: 25 MILLIGRAM, QD
     Route: 048
     Dates: start: 20210628, end: 20210630
  2. PREGABALIN [Suspect]
     Active Substance: PREGABALIN
     Dosage: 150 MILLIGRAM, QD
     Route: 048
     Dates: start: 20210729
  3. PREGABALIN [Suspect]
     Active Substance: PREGABALIN
     Dosage: UNK (DOSE INCREASED)
     Route: 065
  4. DEXAMETHASONE [Suspect]
     Active Substance: DEXAMETHASONE
     Indication: Neuralgia
     Dosage: 2 MILLIGRAM, QD
     Route: 048
     Dates: start: 20210601
  5. METOCLOPRAMIDE [Suspect]
     Active Substance: METOCLOPRAMIDE
     Indication: Neuralgia
     Dosage: 30 MILLIGRAM, QD
     Route: 048
     Dates: start: 20210806, end: 20210829
  6. METAMIZOLE [Suspect]
     Active Substance: METAMIZOLE
     Indication: Neuralgia
     Dosage: 1500 MILLIGRAM, QD
     Route: 048
     Dates: start: 20210628
  7. METAMIZOLE [Suspect]
     Active Substance: METAMIZOLE
     Dosage: 2000 MILLIGRAM, QD
     Route: 048
     Dates: start: 20210629, end: 20210713
  8. METAMIZOLE [Suspect]
     Active Substance: METAMIZOLE
     Dosage: 5000 MILLIGRAM, QD
     Route: 048
     Dates: start: 20210714
  9. METAMIZOLE [Suspect]
     Active Substance: METAMIZOLE
     Dosage: UNK (DOSE INCREASED)
     Route: 065
  10. RISPERDAL [Suspect]
     Active Substance: RISPERIDONE
     Indication: Hallucination
     Dosage: 2 MILLIGRAM, QD
     Route: 048
     Dates: start: 20210601, end: 20210627
  11. RISPERDAL [Suspect]
     Active Substance: RISPERIDONE
     Indication: Psychotic disorder
     Dosage: 3 MILLIGRAM, QD
     Route: 048
     Dates: start: 20210628
  12. RISPERDAL [Suspect]
     Active Substance: RISPERIDONE
     Dosage: 3 MILLIGRAM, QD
     Route: 048
     Dates: start: 20210628
  13. TRAMADOL HYDROCHLORIDE [Suspect]
     Active Substance: TRAMADOL HYDROCHLORIDE
     Indication: Product used for unknown indication
     Dosage: 50 MILLIGRAM, QD (PROLONGED-RELEASE TABLET))
     Route: 048
     Dates: start: 20210805
  14. TRAMADOL HYDROCHLORIDE [Suspect]
     Active Substance: TRAMADOL HYDROCHLORIDE
     Dosage: 100 MILLIGRAM (PROLONGED-RELEASE TABLET)
     Route: 048
     Dates: start: 20210806, end: 20210812
  15. TRAMADOL HYDROCHLORIDE [Suspect]
     Active Substance: TRAMADOL HYDROCHLORIDE
     Dosage: 200 MILLIGRAM, QD (PROLONGED-RELEASE TABLET)
     Route: 048
     Dates: start: 20210813
  16. TRAMADOL HYDROCHLORIDE [Suspect]
     Active Substance: TRAMADOL HYDROCHLORIDE
     Dosage: UNK (DOSE INCREASED)
     Route: 065

REACTIONS (3)
  - Gamma-glutamyltransferase increased [Recovering/Resolving]
  - Aspartate aminotransferase increased [Recovering/Resolving]
  - Alanine aminotransferase increased [Recovering/Resolving]

NARRATIVE: CASE EVENT DATE: 20210801
